FAERS Safety Report 6976125-3 (Version None)
Quarter: 2010Q3

REPORT INFORMATION
  Report Type: 
  Country: None (occurrence: None)
  Receive Date: 20100910
  Receipt Date: 20090519
  Transmission Date: 20110219
  Serious: No
  Sender: FDA-Public Use
  Company Number: US-WYE-H09094509

PATIENT
  Age: 35 Year
  Sex: Male
  Weight: 113.5 kg

DRUGS (2)
  1. PRISTIQ [Suspect]
     Indication: DEPRESSION
     Dosage: 50 MG, FREQUENCY NOT SPECIFIED
     Route: 048
     Dates: start: 20081211, end: 20090317
  2. PRISTIQ [Suspect]
     Indication: AGGRESSION

REACTIONS (1)
  - COUGH [None]
